FAERS Safety Report 16589111 (Version 5)
Quarter: 2021Q2

REPORT INFORMATION
  Report Type: Spontaneous
  Country: US (occurrence: US)
  Receive Date: 20190718
  Receipt Date: 20210630
  Transmission Date: 20210716
  Serious: Yes (Hospitalization, Other)
  Sender: FDA-Public Use
  Company Number: US-GILEAD-2019-0418470

PATIENT
  Age: 49 Year
  Sex: Male
  Weight: 78.91 kg

DRUGS (47)
  1. TRUVADA [Suspect]
     Active Substance: EMTRICITABINE\TENOFOVIR DISOPROXIL FUMARATE
     Dosage: UNK
     Route: 065
     Dates: start: 2011, end: 20141115
  2. TRIUMEQ [Concomitant]
     Active Substance: ABACAVIR SULFATE\DOLUTEGRAVIR SODIUM\LAMIVUDINE
  3. GRANISETRON [Concomitant]
     Active Substance: GRANISETRON
  4. AMOXICILLIN. [Concomitant]
     Active Substance: AMOXICILLIN
  5. ISENTRESS [Concomitant]
     Active Substance: RALTEGRAVIR POTASSIUM
  6. TRUVADA [Suspect]
     Active Substance: EMTRICITABINE\TENOFOVIR DISOPROXIL FUMARATE
     Indication: HIV INFECTION
     Dosage: UNK
     Route: 065
     Dates: start: 2011, end: 2011
  7. EFUDEX [Concomitant]
     Active Substance: FLUOROURACIL
  8. VIRACEPT [Concomitant]
     Active Substance: NELFINAVIR MESYLATE
  9. VIRAMUNE [Concomitant]
     Active Substance: NEVIRAPINE
  10. EPIVIR [Concomitant]
     Active Substance: LAMIVUDINE
  11. RETROVIR [Concomitant]
     Active Substance: ZIDOVUDINE
  12. VIREAD [Suspect]
     Active Substance: TENOFOVIR DISOPROXIL FUMARATE
     Indication: HIV INFECTION
     Dosage: UNK
     Route: 048
     Dates: start: 2001, end: 2011
  13. VIREAD [Suspect]
     Active Substance: TENOFOVIR DISOPROXIL FUMARATE
     Dosage: UNK
     Route: 065
     Dates: start: 2005, end: 2011
  14. PREZISTA [Concomitant]
     Active Substance: DARUNAVIR ETHANOLATE
  15. PROZAC [Concomitant]
     Active Substance: FLUOXETINE HYDROCHLORIDE
  16. WELLBUTRIN [Concomitant]
     Active Substance: BUPROPION HYDROCHLORIDE
  17. AMITRIPTYLINE [Concomitant]
     Active Substance: AMITRIPTYLINE
  18. CORTISONE [Concomitant]
     Active Substance: CORTISONE
  19. HEPARIN [Concomitant]
     Active Substance: HEPARIN SODIUM
  20. VANCOMYCIN [Concomitant]
     Active Substance: VANCOMYCIN
  21. ANDROGEL [Concomitant]
     Active Substance: TESTOSTERONE
  22. KLONOPIN [Concomitant]
     Active Substance: CLONAZEPAM
  23. FLEET ENEMA [Concomitant]
     Active Substance: SODIUM PHOSPHATE, DIBASIC\SODIUM PHOSPHATE, MONOBASIC
  24. RANITIDINE. [Concomitant]
     Active Substance: RANITIDINE
  25. EMTRIVA [Concomitant]
     Active Substance: EMTRICITABINE
  26. VASCEPA [Concomitant]
     Active Substance: ICOSAPENT ETHYL
  27. VALTREX [Concomitant]
     Active Substance: VALACYCLOVIR HYDROCHLORIDE
  28. ALBUTEROL HFA [Concomitant]
     Active Substance: ALBUTEROL SULFATE
  29. DILAUDID [Concomitant]
     Active Substance: HYDROMORPHONE HYDROCHLORIDE
  30. GABAPENTIN. [Concomitant]
     Active Substance: GABAPENTIN
  31. INDINAVIR [Concomitant]
     Active Substance: INDINAVIR
  32. ISENTRESS [Concomitant]
     Active Substance: RALTEGRAVIR POTASSIUM
  33. VIAGRA [Concomitant]
     Active Substance: SILDENAFIL CITRATE
  34. AZITHROMYCIN ANHYDROUS. [Concomitant]
     Active Substance: AZITHROMYCIN ANHYDROUS
  35. METHADONE [Concomitant]
     Active Substance: METHADONE HYDROCHLORIDE
  36. KALETRA [Concomitant]
     Active Substance: LOPINAVIR\RITONAVIR
  37. ACETAMINOPHEN. [Concomitant]
     Active Substance: ACETAMINOPHEN
  38. ZERIT [Concomitant]
     Active Substance: STAVUDINE
  39. CIALIS [Concomitant]
     Active Substance: TADALAFIL
  40. CRIXIVAN [Concomitant]
     Active Substance: INDINAVIR SULFATE
  41. NORVIR [Concomitant]
     Active Substance: RITONAVIR
  42. SUSTIVA [Concomitant]
     Active Substance: EFAVIRENZ
  43. ASPIRIN [ACETYLSALICYLIC ACID] [Concomitant]
     Active Substance: ASPIRIN
  44. AMPICILLIN [Concomitant]
     Active Substance: AMPICILLIN
  45. CIMETIDINE [Concomitant]
     Active Substance: CIMETIDINE
  46. PENICILLIN [BENZYLPENICILLIN] [Concomitant]
     Active Substance: PENICILLIN G
  47. INVIRASE [Concomitant]
     Active Substance: SAQUINAVIR MESYLATE

REACTIONS (15)
  - Economic problem [Not Recovered/Not Resolved]
  - Nephrolithiasis [Not Recovered/Not Resolved]
  - Hydronephrosis [Not Recovered/Not Resolved]
  - Anhedonia [Not Recovered/Not Resolved]
  - Bone density decreased [Not Recovered/Not Resolved]
  - Arthritis [Unknown]
  - Osteoporosis [Not Recovered/Not Resolved]
  - Renal failure [Not Recovered/Not Resolved]
  - Osteoarthritis [Not Recovered/Not Resolved]
  - Anxiety [Not Recovered/Not Resolved]
  - Osteonecrosis [Not Recovered/Not Resolved]
  - Bone loss [Not Recovered/Not Resolved]
  - Pain [Not Recovered/Not Resolved]
  - Emotional distress [Not Recovered/Not Resolved]
  - Osteopenia [Not Recovered/Not Resolved]

NARRATIVE: CASE EVENT DATE: 200801
